FAERS Safety Report 23677546 (Version 1)
Quarter: 2024Q1

REPORT INFORMATION
  Report Type: Spontaneous
  Country: NO (occurrence: NO)
  Receive Date: 20240327
  Receipt Date: 20240327
  Transmission Date: 20240409
  Serious: Yes (Hospitalization)
  Sender: FDA-Public Use
  Company Number: NO-ACRAF SpA-2024-033717

PATIENT
  Sex: Female
  Weight: 45 kg

DRUGS (6)
  1. CENOBAMATE [Suspect]
     Active Substance: CENOBAMATE
     Indication: Partial seizures
     Route: 065
     Dates: start: 202401
  2. CENOBAMATE [Suspect]
     Active Substance: CENOBAMATE
     Route: 065
     Dates: start: 202402
  3. CENOBAMATE [Suspect]
     Active Substance: CENOBAMATE
     Route: 065
     Dates: start: 202309
  4. BRIVARACETAM [Suspect]
     Active Substance: BRIVARACETAM
     Indication: Partial seizures
     Route: 065
     Dates: start: 2023
  5. ACETAZOLAMIDE [Suspect]
     Active Substance: ACETAZOLAMIDE
     Indication: Partial seizures
     Route: 065
     Dates: start: 2023
  6. RITUXIMAB [Suspect]
     Active Substance: RITUXIMAB
     Indication: Partial seizures
     Dosage: ANTICD20 TREATMENT 2 INFUSIONS
     Route: 042
     Dates: start: 20230101, end: 202310

REACTIONS (9)
  - Streptococcal infection [Unknown]
  - Pancytopenia [Unknown]
  - B-lymphocyte count decreased [Unknown]
  - CD4 lymphocytes decreased [Unknown]
  - Campylobacter infection [Unknown]
  - Immune system disorder [Unknown]
  - Oral candidiasis [Unknown]
  - Parvovirus B19 infection [Unknown]
  - Off label use [Unknown]

NARRATIVE: CASE EVENT DATE: 20230901
